FAERS Safety Report 7728997-2 (Version None)
Quarter: 2011Q3

REPORT INFORMATION
  Report Type: 
  Country: None (occurrence: None)
  Receive Date: 20110906
  Receipt Date: 20110823
  Transmission Date: 20111222
  Serious: Yes (Other)
  Sender: FDA-Public Use
  Company Number: US-UCBSA-036005

PATIENT
  Sex: Female
  Weight: 155 kg

DRUGS (20)
  1. ELAVIL [Concomitant]
     Indication: PAIN
     Dosage: AT NIGHT
  2. OMEPRAZOLE/PRILOSEC [Concomitant]
     Indication: GASTROOESOPHAGEAL REFLUX DISEASE
  3. PREMARIN [Concomitant]
     Indication: ATROPHIC VULVOVAGINITIS
     Dosage: 0.5 G PLUNGER
  4. FOSAMAX [Concomitant]
     Indication: OSTEOPENIA
  5. MINOCIN [Concomitant]
     Indication: RHEUMATOID ARTHRITIS
     Dosage: 100 MG PELLETS ON MONDAY, WEDNESDAY AND FRIDAY (MWF)
  6. KLONOPIN [Concomitant]
     Indication: ANXIETY
     Dosage: 2-3 PER DAY
  7. AZITHROMYCIN [Concomitant]
     Indication: RHEUMATOID ARTHRITIS
     Dosage: TUESDAY, THURSDAY AND SATURDAY
  8. CLOBETASOL PROPIONATE [Concomitant]
     Indication: PSORIASIS
  9. COREG CR [Concomitant]
     Indication: ANGINA PECTORIS
  10. SAVELLA [Concomitant]
     Indication: PAIN
  11. SYNTHROID [Concomitant]
     Indication: AUTOIMMUNE THYROIDITIS
     Dosage: AT WAKEUP
  12. RESTASIS [Concomitant]
     Indication: SJOGREN'S SYNDROME
     Dosage: 1 DROP 1XADAY
  13. MUPIROCIN [Concomitant]
     Indication: EPISTAXIS
     Dosage: 2-3 TIMES A DAY
  14. TRAZODONE HCL [Concomitant]
     Indication: FIBROMYALGIA
     Dosage: AT BEDTIME
  15. TRAZODONE HCL [Concomitant]
     Indication: SLEEP DISORDER
     Dosage: AT BEDTIME
  16. CIMZIA [Suspect]
     Indication: RHEUMATOID ARTHRITIS
     Dosage: 2-200 MG ONCE A MONTH
     Route: 058
  17. FLUROMETHOLONE [Concomitant]
     Indication: DRY EYE
     Dosage: 1 DROP 3XA DAY
  18. COREG CR [Concomitant]
     Indication: OESOPHAGEAL SPASM
  19. HYDROCODONE BT/IBUPROFEN [Concomitant]
     Indication: PAIN
     Dosage: 7.5/200
  20. ELAVIL [Concomitant]
     Indication: DEPRESSION
     Dosage: AT NIGHT

REACTIONS (6)
  - SINUSITIS [None]
  - PSORIASIS [None]
  - DIZZINESS [None]
  - INJECTION SITE MASS [None]
  - CONDITION AGGRAVATED [None]
  - INJECTION SITE DISCOLOURATION [None]
